FAERS Safety Report 7350102-5 (Version None)
Quarter: 2011Q1

REPORT INFORMATION
  Report Type: 
  Country: None (occurrence: None)
  Receive Date: 20110314
  Receipt Date: 20101124
  Transmission Date: 20110831
  Serious: Yes (Other)
  Sender: FDA-Public Use
  Company Number: A0897512A

PATIENT
  Age: 52 Year
  Sex: Male

DRUGS (1)
  1. AVANDAMET [Suspect]
     Indication: DIABETES MELLITUS
     Route: 048
     Dates: start: 20090206, end: 20100805

REACTIONS (3)
  - CEREBROVASCULAR ACCIDENT [None]
  - THROMBOSIS [None]
  - PULMONARY HYPERTENSION [None]
